FAERS Safety Report 13322209 (Version 1)
Quarter: 2017Q1

REPORT INFORMATION
  Report Type: Spontaneous
  Country: US (occurrence: US)
  Receive Date: 20170310
  Receipt Date: 20170310
  Transmission Date: 20170428
  Serious: Yes (Other)
  Sender: FDA-Public Use
  Company Number: US-TEVA-747623USA

PATIENT
  Sex: Female

DRUGS (1)
  1. ESOMEPRAZOLE [Suspect]
     Active Substance: ESOMEPRAZOLE
     Indication: GASTROOESOPHAGEAL REFLUX DISEASE
     Dosage: 40 MILLIGRAM DAILY; ONCE DAILY IN THE EVENING
     Route: 065
     Dates: start: 2016

REACTIONS (4)
  - Scab [Unknown]
  - Drug ineffective [Unknown]
  - Haemorrhage [Unknown]
  - Rash pruritic [Not Recovered/Not Resolved]
